FAERS Safety Report 13384306 (Version 1)
Quarter: 2017Q1

REPORT INFORMATION
  Report Type: Spontaneous
  Country: US (occurrence: US)
  Receive Date: 20170329
  Receipt Date: 20170329
  Transmission Date: 20170429
  Serious: Yes (Hospitalization)
  Sender: FDA-Public Use
  Company Number: None

PATIENT
  Age: 84 Year
  Sex: Male

DRUGS (2)
  1. ENOXAPARIN [Suspect]
     Active Substance: ENOXAPARIN
     Indication: ATRIAL FIBRILLATION
     Route: 058
     Dates: start: 20170102
  2. ENOXAPARIN [Suspect]
     Active Substance: ENOXAPARIN
     Indication: DEEP VEIN THROMBOSIS
     Route: 058
     Dates: start: 20170102

REACTIONS (7)
  - Haemorrhage [None]
  - Chest pain [None]
  - Axillary pain [None]
  - Deep vein thrombosis [None]
  - Chest wall haematoma [None]
  - Anaemia [None]
  - Swelling [None]

NARRATIVE: CASE EVENT DATE: 20170227
